FAERS Safety Report 8394912-4 (Version None)
Quarter: 2012Q2

REPORT INFORMATION
  Report Type: 
  Country: None (occurrence: None)
  Receive Date: 20120530
  Receipt Date: 20110531
  Transmission Date: 20120825
  Serious: No
  Sender: FDA-Public Use
  Company Number: US-GLAXOSMITHKLINE-A0930669A

PATIENT
  Age: 58 Year
  Sex: Female
  Weight: 60 kg

DRUGS (2)
  1. FLOLAN [Suspect]
     Indication: PULMONARY ARTERIAL HYPERTENSION
     Dosage: 10NGKM UNKNOWN
     Route: 065
     Dates: start: 20020501
  2. LETAIRIS [Suspect]
     Route: 065

REACTIONS (4)
  - PAIN IN JAW [None]
  - NASAL DISCOMFORT [None]
  - HYPERAESTHESIA [None]
  - BURNING SENSATION [None]
